FAERS Safety Report 6826841-9 (Version None)
Quarter: 2010Q3

REPORT INFORMATION
  Report Type: 
  Country: None (occurrence: None)
  Receive Date: 20100709
  Receipt Date: 20100628
  Transmission Date: 20110219
  Serious: Yes (Hospitalization)
  Sender: FDA-Public Use
  Company Number: GB-ROCHE-711882

PATIENT
  Age: 81 Year
  Sex: Female

DRUGS (9)
  1. AVASTIN [Suspect]
     Indication: PRODUCT USED FOR UNKNOWN INDICATION
     Route: 065
     Dates: start: 20080501
  2. LUCENTIS [Suspect]
     Indication: PRODUCT USED FOR UNKNOWN INDICATION
     Route: 031
     Dates: start: 20081201
  3. LUCENTIS [Suspect]
     Route: 031
     Dates: start: 20090226
  4. LUCENTIS [Suspect]
     Route: 031
     Dates: start: 20090601
  5. LUCENTIS [Suspect]
     Route: 031
     Dates: start: 20090901
  6. ACETYLSALICYLIC ACID [Concomitant]
  7. ATENOLOL [Concomitant]
  8. NITROGLYCERIN [Concomitant]
  9. SIMVASTATIN [Concomitant]

REACTIONS (3)
  - BLADDER OPERATION [None]
  - CARDIAC DISORDER [None]
  - MALAISE [None]
